FAERS Safety Report 6198006-8 (Version None)
Quarter: 2009Q2

REPORT INFORMATION
  Report Type: 
  Country: None (occurrence: None)
  Receive Date: 20090521
  Receipt Date: 20090514
  Transmission Date: 20091009
  Serious: Yes (Hospitalization)
  Sender: FDA-Public Use
  Company Number: BR-ELI_LILLY_AND_COMPANY-BR200905003075

PATIENT
  Sex: Female
  Weight: 60 kg

DRUGS (4)
  1. FORTEO [Suspect]
     Indication: OSTEOPOROSIS
     Dosage: UNK, DAILY (1/D)
     Route: 065
     Dates: start: 20080915, end: 20090509
  2. BLOPRESS [Concomitant]
     Dosage: 8 MG, EACH MORNING
     Route: 065
  3. SIMVASTATINA [Concomitant]
     Dosage: 10 MG, DAILY (1/D)
     Route: 065
  4. BETAHISTINE DIHYDROCHLORIDE [Concomitant]
     Dosage: 16 MG, DAILY (1/D)
     Route: 065

REACTIONS (2)
  - NEPHROLITHIASIS [None]
  - PAIN [None]
